FAERS Safety Report 8780273 (Version 1)
Quarter: 2012Q4

REPORT INFORMATION
  Report Type: Spontaneous
  Country: US (occurrence: None)
  Receive Date: 20120905
  Receipt Date: 20120905
  Transmission Date: 20130627
  Serious: No
  Sender: FDA-Public Use
  Company Number: None

PATIENT

DRUGS (1)
  1. TAMSULOSIN [Suspect]
     Dosage: 0.4 MG CAP 1 (ONE) A DAY
     Dates: start: 20120727

REACTIONS (1)
  - Blood glucose increased [None]
